FAERS Safety Report 8949121 (Version 2)
Quarter: 2013Q1

REPORT INFORMATION
  Report Type: Spontaneous
  Country: US (occurrence: US)
  Receive Date: 20121206
  Receipt Date: 20130110
  Transmission Date: 20140127
  Serious: No
  Sender: FDA-Public Use
  Company Number: US-009507513-1212USA002196

PATIENT
  Age: 85 Year
  Sex: Female
  Weight: 54.42 kg

DRUGS (5)
  1. CLARITIN-D 24 HOUR [Suspect]
     Indication: RHINITIS
     Dosage: UNK, UNKNOWN
     Route: 048
     Dates: start: 20120608, end: 20120610
  2. CLARITIN-D 24 HOUR [Suspect]
     Indication: MEDICAL OBSERVATION
  3. PROCARDIA [Concomitant]
     Indication: HYPERTENSION
     Dosage: UNK, UNKNOWN
  4. NORVASC [Concomitant]
     Indication: HYPERTENSION
     Dosage: UNK, UNKNOWN
  5. HYZAAR [Concomitant]
     Indication: HYPERTENSION
     Dosage: UNK, UNKNOWN

REACTIONS (1)
  - Malaise [Recovered/Resolved]
